FAERS Safety Report 4647271-4 (Version None)
Quarter: 2005Q2

REPORT INFORMATION
  Report Type: 
  Country: None (occurrence: None)
  Receive Date: 20050426
  Receipt Date: 20050414
  Transmission Date: 20051028
  Serious: Yes (Other)
  Sender: FDA-Public Use
  Company Number: 2005061159

PATIENT
  Age: 50 Year
  Sex: Male

DRUGS (5)
  1. ZOLOFT [Suspect]
     Indication: BIPOLAR DISORDER
     Dosage: 50 MG (50 MG, 1 IN 1 D), ORAL
     Route: 048
  2. ATORVASTATIN (ATORVASTATIN) [Concomitant]
  3. CLOPIDOGREL BISULFATE [Concomitant]
  4. AMLODIPINE BESYLATE [Concomitant]
  5. MIRTAZAPINE [Concomitant]

REACTIONS (3)
  - ALCOHOL USE [None]
  - DRUG ABUSER [None]
  - DRUG SCREEN FALSE POSITIVE [None]
